FAERS Safety Report 19950292 (Version 1)
Quarter: 2021Q4

REPORT INFORMATION
  Report Type: Spontaneous
  Country: US (occurrence: US)
  Receive Date: 20211009
  Receipt Date: 20211009
  Transmission Date: 20220303
  Serious: Yes (Death, Hospitalization)
  Sender: FDA-Public Use
  Company Number: None

PATIENT
  Age: 54 Year
  Sex: Male
  Weight: 84.1 kg

DRUGS (5)
  1. CISPLATIN [Suspect]
     Active Substance: CISPLATIN
     Dates: end: 20201110
  2. GEMCITABINE HYDROCHLORIDE [Suspect]
     Active Substance: GEMCITABINE HYDROCHLORIDE
     Dates: end: 20201110
  3. ATORVASTATIN [Concomitant]
     Active Substance: ATORVASTATIN
  4. HYDROCODONE-ACETAMINOPEHN [Concomitant]
  5. TRAMADOL [Concomitant]
     Active Substance: TRAMADOL

REACTIONS (14)
  - Cardiomyopathy [None]
  - Acute kidney injury [None]
  - Lethargy [None]
  - Pallor [None]
  - Ocular icterus [None]
  - Breath sounds abnormal [None]
  - Tachycardia [None]
  - Ascites [None]
  - Abdominal tenderness [None]
  - Oedema [None]
  - Cyanosis [None]
  - Oedema peripheral [None]
  - Hyponatraemia [None]
  - COVID-19 [None]

NARRATIVE: CASE EVENT DATE: 20201123
